FAERS Safety Report 9788962 (Version 3)
Quarter: 2014Q1

REPORT INFORMATION
  Report Type: Spontaneous
  Country: GB (occurrence: GB)
  Receive Date: 20131230
  Receipt Date: 20140115
  Transmission Date: 20141002
  Serious: Yes (Other)
  Sender: FDA-Public Use
  Company Number: GB-UCBSA-106829

PATIENT
  Age: 66 Year
  Sex: Female

DRUGS (7)
  1. CIMZIA [Suspect]
     Indication: RHEUMATOID ARTHRITIS
     Route: 058
     Dates: start: 20130604
  2. LANTUS [Concomitant]
     Indication: TYPE 1 DIABETES MELLITUS
     Dosage: 18 UNITS AT NIGHT
     Route: 058
  3. LANTUS [Concomitant]
     Indication: TYPE 1 DIABETES MELLITUS
     Dosage: 14 UNITS
  4. APIDRA [Concomitant]
     Indication: TYPE 1 DIABETES MELLITUS
     Dosage: 8 UNITS THREE TIMES A DAY
     Route: 058
  5. APIDRA [Concomitant]
     Indication: TYPE 1 DIABETES MELLITUS
     Dosage: 8 UNITS
  6. FOLIC ACID [Concomitant]
     Indication: RHEUMATOID ARTHRITIS
     Route: 048
  7. METHOTREXATE [Concomitant]
     Indication: RHEUMATOID ARTHRITIS
     Route: 048

REACTIONS (2)
  - Hypoglycaemia [Recovered/Resolved]
  - Decreased insulin requirement [Unknown]
